FAERS Safety Report 6820376-5 (Version None)
Quarter: 2010Q3

REPORT INFORMATION
  Report Type: 
  Country: None (occurrence: None)
  Receive Date: 20100707
  Receipt Date: 20100625
  Transmission Date: 20110219
  Serious: Yes (Other)
  Sender: FDA-Public Use
  Company Number: US-WYE-H00638607

PATIENT
  Sex: Female

DRUGS (3)
  1. PREMARIN [Suspect]
  2. PREMARIN [Suspect]
  3. PROVERA [Suspect]

REACTIONS (3)
  - ARTHRITIS [None]
  - BREAST CANCER RECURRENT [None]
  - RENAL FAILURE CHRONIC [None]
